FAERS Safety Report 4970346-7 (Version None)
Quarter: 2006Q2

REPORT INFORMATION
  Report Type: 
  Country: None (occurrence: None)
  Receive Date: 20060406
  Receipt Date: 20060330
  Transmission Date: 20061013
  Serious: Yes (Disabling, Other)
  Sender: FDA-Public Use
  Company Number: 2006044729

PATIENT
  Sex: Female
  Weight: 68.9467 kg

DRUGS (5)
  1. NEURONTIN [Suspect]
     Indication: NEURALGIA
     Dosage: (300 MG,), ORAL
     Route: 048
     Dates: start: 20040329
  2. GABAPENTIN [Suspect]
     Indication: NEURALGIA
     Dosage: 1200 MG (300 MG, 4 IN 1 D), ORAL
     Route: 048
     Dates: start: 20060101
  3. DILAUDID [Suspect]
     Indication: PAIN
     Dates: start: 20040329
  4. NORTRIPTYLINE (NORTRIPTYLINE) [Concomitant]
  5. DURAGESIC-100 [Concomitant]

REACTIONS (5)
  - BEDRIDDEN [None]
  - MUSCLE ATROPHY [None]
  - TREATMENT NONCOMPLIANCE [None]
  - VISION BLURRED [None]
  - WEIGHT FLUCTUATION [None]
